FAERS Safety Report 4970222-X (Version None)
Quarter: 2006Q2

REPORT INFORMATION
  Report Type: 
  Country: None (occurrence: None)
  Receive Date: 20060406
  Receipt Date: 20060324
  Transmission Date: 20061013
  Serious: Yes (Hospitalization)
  Sender: FDA-Public Use
  Company Number: US200603006326

PATIENT
  Age: 86 Year
  Sex: Female

DRUGS (1)
  1. EVISTA [Suspect]
     Indication: OSTEOPOROSIS
     Dosage: ORAL
     Route: 048
     Dates: start: 20030101

REACTIONS (5)
  - DRY SKIN [None]
  - NIPPLE DISORDER [None]
  - PRURITUS [None]
  - SCAB [None]
  - SPINAL FRACTURE [None]
